FAERS Safety Report 13899105 (Version 2)
Quarter: 2018Q1

REPORT INFORMATION
  Report Type: Spontaneous
  Country: US (occurrence: US)
  Receive Date: 20170823
  Receipt Date: 20180125
  Transmission Date: 20180508
  Serious: No
  Sender: FDA-Public Use
  Company Number: US-ACTELION-A-NJ2017-158339

PATIENT
  Age: 57 Year
  Sex: Female
  Weight: 92.63 kg

DRUGS (5)
  1. ADCIRCA [Concomitant]
     Active Substance: TADALAFIL
  2. COUMADIN [Concomitant]
     Active Substance: WARFARIN SODIUM
  3. TYVASO [Concomitant]
     Active Substance: TREPROSTINIL
  4. TRACLEER [Suspect]
     Active Substance: BOSENTAN
     Indication: PULMONARY ARTERIAL HYPERTENSION
     Dosage: 125 MG, BID
     Route: 048
  5. DILTIAZEM. [Concomitant]
     Active Substance: DILTIAZEM

REACTIONS (7)
  - Cough [Unknown]
  - Dyspnoea [Unknown]
  - Urticaria [Recovering/Resolving]
  - Rash pruritic [Not Recovered/Not Resolved]
  - Hypoaesthesia [Unknown]
  - Headache [Unknown]
  - Dizziness [Unknown]
